FAERS Safety Report 4404291-2 (Version None)
Quarter: 2004Q3

REPORT INFORMATION
  Report Type: 
  Country: None (occurrence: None)
  Receive Date: 20040714
  Receipt Date: 20040707
  Transmission Date: 20050211
  Serious: Yes (Hospitalization)
  Sender: FDA-Public Use
  Company Number: FRWYE500409JAN04

PATIENT
  Age: 2 Year
  Sex: Male

DRUGS (4)
  1. REFACTO [Suspect]
     Indication: FACTOR VIII DEFICIENCY
     Dosage: ONE INJECTION WEEKLY OF 1,000 IU AS PROPHYLAXIS, INTRAVENOUS
     Route: 042
     Dates: end: 20040101
  2. REFACTO [Suspect]
     Indication: FACTOR VIII DEFICIENCY
     Dosage: ONE INJECTION WEEKLY OF 1,000 IU AS PROPHYLAXIS, INTRAVENOUS
     Route: 042
     Dates: start: 20040101, end: 20040226
  3. REFACTO [Suspect]
  4. REFACTO [Suspect]

REACTIONS (12)
  - ANGIONEUROTIC OEDEMA [None]
  - BRADYCARDIA [None]
  - COUGH [None]
  - ERYTHEMA [None]
  - INJECTION SITE HAEMORRHAGE [None]
  - LOSS OF CONSCIOUSNESS [None]
  - MALAISE [None]
  - PHARMACEUTICAL PRODUCT COMPLAINT [None]
  - SYNCOPE VASOVAGAL [None]
  - URTICARIA [None]
  - VOMITING [None]
  - WHEEZING [None]
